FAERS Safety Report 6204767-1 (Version None)
Quarter: 2009Q2

REPORT INFORMATION
  Report Type: 
  Country: None (occurrence: None)
  Receive Date: 20090527
  Receipt Date: 20090515
  Transmission Date: 20091009
  Serious: Yes (Death, Hospitalization)
  Sender: FDA-Public Use
  Company Number: BE-PFIZER INC-2009213721

PATIENT
  Age: 39 Year

DRUGS (1)
  1. VORICONAZOLE [Suspect]
     Indication: FUNGAL INFECTION

REACTIONS (1)
  - ZYGOMYCOSIS [None]
